FAERS Safety Report 7974716-4 (Version None)
Quarter: 2011Q4

REPORT INFORMATION
  Report Type: 
  Country: None (occurrence: None)
  Receive Date: 20111213
  Receipt Date: 20111206
  Transmission Date: 20120403
  Serious: Yes (Other)
  Sender: FDA-Public Use
  Company Number: PHEH2011US010002

PATIENT
  Sex: Male

DRUGS (1)
  1. GLEEVEC [Suspect]
     Indication: SMALL INTESTINE CARCINOMA
     Dosage: 400 MG, DAILY
     Route: 048
     Dates: start: 20110804

REACTIONS (4)
  - IMPLANT SITE INFECTION [None]
  - WOUND INFECTION [None]
  - IMPLANT SITE REACTION [None]
  - WOUND COMPLICATION [None]
